FAERS Safety Report 7529120-X (Version None)
Quarter: 2011Q2

REPORT INFORMATION
  Report Type: 
  Country: None (occurrence: None)
  Receive Date: 20110607
  Receipt Date: 20110518
  Transmission Date: 20111010
  Serious: Yes (Hospitalization)
  Sender: FDA-Public Use
  Company Number: US-ASTRAZENECA-2010SE49113

PATIENT
  Age: 76 Year
  Sex: Female
  Weight: 60.3 kg

DRUGS (10)
  1. LISINOPRIL [Suspect]
     Route: 048
  2. ASCORBIC ACID [Concomitant]
  3. FISH OIL, HYDROGENATED [Concomitant]
  4. FORTEO [Suspect]
     Route: 058
  5. ARIMIDEX [Suspect]
     Indication: BREAST CANCER
     Route: 048
     Dates: start: 20051213, end: 20100804
  6. EFFEXOR [Suspect]
     Route: 048
  7. HYDROCHLOROTHIAZIDE [Suspect]
     Route: 048
  8. SPIRIVA [Suspect]
     Route: 055
  9. COLECALCIFEROL [Concomitant]
  10. NORVASC [Suspect]
     Route: 048

REACTIONS (7)
  - CARDIAC FAILURE CONGESTIVE [None]
  - MYOCARDIAL ISCHAEMIA [None]
  - MYOCARDIAL INFARCTION [None]
  - TROPONIN I INCREASED [None]
  - BUNDLE BRANCH BLOCK LEFT [None]
  - HYPOXIA [None]
  - RESTRICTIVE CARDIOMYOPATHY [None]
